FAERS Safety Report 20032883 (Version 2)
Quarter: 2021Q4

REPORT INFORMATION
  Report Type: Spontaneous
  Country: US (occurrence: US)
  Receive Date: 20211104
  Receipt Date: 20211104
  Transmission Date: 20220303
  Serious: Yes (Other)
  Sender: FDA-Public Use
  Company Number: US-AMGEN-USASP2021171099

PATIENT
  Age: 56 Year
  Sex: Female

DRUGS (6)
  1. EPOETIN ALFA [Suspect]
     Active Substance: ERYTHROPOIETIN
     Indication: Anaemia
     Dosage: 40000 UNIT (TIW)
     Route: 065
  2. PEGINTERFERON ALFA-2B [Concomitant]
     Active Substance: PEGINTERFERON ALFA-2B
     Dosage: 1.5 MICROGRAM/KILOGRAM, QWK
     Route: 058
  3. BOCEPREVIR [Concomitant]
     Active Substance: BOCEPREVIR
     Dosage: 800 MILLIGRAM, TID
     Route: 048
  4. RIBAVIRIN [Concomitant]
     Active Substance: RIBAVIRIN
     Dosage: 600-1,400 MG/DAY
  5. RITUXIMAB [Concomitant]
     Active Substance: RITUXIMAB
     Dosage: UNK
  6. METHYLPREDNISOLONE [Concomitant]
     Active Substance: METHYLPREDNISOLONE
     Dosage: UNK

REACTIONS (1)
  - Aplasia pure red cell [Recovered/Resolved]
